FAERS Safety Report 6551298-5 (Version None)
Quarter: 2010Q1

REPORT INFORMATION
  Report Type: 
  Country: None (occurrence: None)
  Receive Date: 20100126
  Receipt Date: 20100114
  Transmission Date: 20100710
  Serious: Yes (Other)
  Sender: FDA-Public Use
  Company Number: US-RB-001001-10

PATIENT
  Age: 75 Year
  Sex: Female

DRUGS (1)
  1. MUCINEX [Suspect]
     Indication: RESPIRATORY TRACT CONGESTION
     Route: 048
     Dates: start: 20100108

REACTIONS (1)
  - FAECES DISCOLOURED [None]
